FAERS Safety Report 22374928 (Version 3)
Quarter: 2023Q2

REPORT INFORMATION
  Report Type: Spontaneous
  Country: US (occurrence: US)
  Receive Date: 20230527
  Receipt Date: 20230630
  Transmission Date: 20230722
  Serious: No
  Sender: FDA-Public Use
  Company Number: US-UNITED THERAPEUTICS-UNT-2023-014638

PATIENT
  Sex: Female
  Weight: 112.47 kg

DRUGS (5)
  1. REMODULIN [Suspect]
     Active Substance: TREPROSTINIL
     Indication: Pulmonary arterial hypertension
     Dosage: 0.020 ?G/KG (PHARMACY FILLED WITH 2.6 ML/CASSETTE; PUMP RATE 27MCL/HOUR), CONTINUING
     Route: 058
     Dates: start: 202305
  2. REMODULIN [Suspect]
     Active Substance: TREPROSTINIL
     Dosage: UNK (PHARMACY FILLED WITH 3 ML/CASSETTE; PUMP RATE 27 MCL/HOUR), CONTINUING
     Route: 058
     Dates: start: 2023
  3. REMODULIN [Suspect]
     Active Substance: TREPROSTINIL
     Dosage: 0.028 ?G/KG (PHARMACY FILLED WITH 3.0 ML/CASSETTE; PUMP RATE 38 MCL/HOUR), CONTINUING
     Route: 058
     Dates: start: 2023
  4. REMODULIN [Suspect]
     Active Substance: TREPROSTINIL
     Dosage: UNK, CONTINUING
     Route: 058
     Dates: start: 20230512
  5. SILDENAFIL [Concomitant]
     Active Substance: SILDENAFIL
     Indication: Product used for unknown indication
     Dosage: UNK
     Route: 065

REACTIONS (12)
  - Infusion site pain [Unknown]
  - Headache [Unknown]
  - Device wireless communication issue [Recovered/Resolved]
  - Infusion site erythema [Unknown]
  - Dizziness [Unknown]
  - Pain [Unknown]
  - Night sweats [Unknown]
  - Dyspnoea [Recovered/Resolved]
  - Gastrointestinal disorder [Unknown]
  - Nausea [Unknown]
  - Decreased appetite [Unknown]
  - Apathy [Unknown]

NARRATIVE: CASE EVENT DATE: 20230101
